FAERS Safety Report 5874358-0 (Version None)
Quarter: 2008Q3

REPORT INFORMATION
  Report Type: 
  Country: None (occurrence: None)
  Receive Date: 20080908
  Receipt Date: 20080829
  Transmission Date: 20090109
  Serious: Yes (Other)
  Sender: FDA-Public Use
  Company Number: US-MERCK-0809USA00642

PATIENT
  Age: 51 Year
  Sex: Female

DRUGS (2)
  1. ZETIA [Suspect]
     Route: 048
  2. CLOZAPINE [Suspect]
     Route: 065

REACTIONS (2)
  - COMA [None]
  - HEPATITIS FULMINANT [None]
